FAERS Safety Report 7008898-8 (Version None)
Quarter: 2010Q3

REPORT INFORMATION
  Report Type: 
  Country: None (occurrence: None)
  Receive Date: 20100923
  Receipt Date: 20100909
  Transmission Date: 20110219
  Serious: Yes (Other)
  Sender: FDA-Public Use
  Company Number: US-BIOGENIDEC-2008BI005931

PATIENT
  Age: 50 Year
  Sex: Female

DRUGS (5)
  1. TYSABRI [Suspect]
     Indication: MULTIPLE SCLEROSIS
     Route: 042
     Dates: start: 20070925, end: 20080228
  2. TYSABRI [Suspect]
     Route: 042
     Dates: start: 20080601
  3. NAPROXEN [Concomitant]
     Indication: ARTHRALGIA
  4. KLONOPIN [Concomitant]
  5. CYMBALTA [Concomitant]

REACTIONS (10)
  - ALANINE AMINOTRANSFERASE INCREASED [None]
  - ARTHRALGIA [None]
  - BLOOD BILIRUBIN INCREASED [None]
  - FALL [None]
  - FATIGUE [None]
  - MEDICAL DEVICE COMPLICATION [None]
  - RECALL PHENOMENON [None]
  - SALMONELLOSIS [None]
  - URINARY TRACT INFECTION [None]
  - WEIGHT INCREASED [None]
